FAERS Safety Report 8956034 (Version 1)
Quarter: 2012Q4

REPORT INFORMATION
  Report Type: 
  Country: US (occurrence: US)
  Receive Date: 20121210
  Receipt Date: 20121210
  Transmission Date: 20130627
  Serious: Yes (Hospitalization)
  Sender: FDA-Public Use
  Company Number: US-BAYER-2012-128441

PATIENT
  Age: 24 Year
  Sex: Female
  Weight: 87 kg

DRUGS (4)
  1. YASMIN [Suspect]
  2. TYLENOL [Concomitant]
  3. ADVIL [Concomitant]
  4. LODINE [Concomitant]

REACTIONS (1)
  - Deep vein thrombosis [None]
